FAERS Safety Report 4791972-4 (Version None)
Quarter: 2005Q4

REPORT INFORMATION
  Report Type: 
  Country: None (occurrence: None)
  Receive Date: 20051005
  Receipt Date: 20050919
  Transmission Date: 20060501
  Serious: Yes (Death)
  Sender: FDA-Public Use
  Company Number: DSA_70808_2005

PATIENT
  Age: 22 Year

DRUGS (3)
  1. METHADONE [Suspect]
     Dosage: DF UNK PO
     Route: 048
  2. FLUOXETINE [Suspect]
     Dosage: DF UNK PO
  3. BUPROPION HCL [Suspect]
     Dosage: DF UNK PO
     Route: 048

REACTIONS (2)
  - CARDIO-RESPIRATORY ARREST [None]
  - MULTIPLE DRUG OVERDOSE [None]
